FAERS Safety Report 12309427 (Version 1)
Quarter: 2016Q2

REPORT INFORMATION
  Report Type: Spontaneous
  Country: US (occurrence: None)
  Receive Date: 20160426
  Receipt Date: 20160426
  Transmission Date: 20160815
  Serious: No
  Sender: FDA-Public Use
  Company Number: None

PATIENT
  Sex: Male
  Weight: 63.5 kg

DRUGS (7)
  1. JARDIANCE [Suspect]
     Active Substance: EMPAGLIFLOZIN
     Indication: TYPE 2 DIABETES MELLITUS
     Route: 048
     Dates: start: 20141130
  2. CRESTOR [Concomitant]
     Active Substance: ROSUVASTATIN CALCIUM
  3. LOSARTAN. [Concomitant]
     Active Substance: LOSARTAN
  4. METPHORMIN [Concomitant]
  5. ALPRAZOLAM. [Concomitant]
     Active Substance: ALPRAZOLAM
  6. MELATONIN [Concomitant]
     Active Substance: MELATONIN
  7. ASPIRIN. [Concomitant]
     Active Substance: ASPIRIN

REACTIONS (4)
  - Confusional state [None]
  - Pollakiuria [None]
  - Memory impairment [None]
  - Amnesia [None]
